FAERS Safety Report 16119730 (Version 1)
Quarter: 2019Q1

REPORT INFORMATION
  Report Type: Spontaneous
  Country: US (occurrence: US)
  Receive Date: 20190326
  Receipt Date: 20190326
  Transmission Date: 20190418
  Serious: Yes (Other)
  Sender: FDA-Public Use
  Company Number: US-009507513-1903USA010165

PATIENT
  Sex: Male

DRUGS (3)
  1. JANUVIA [Suspect]
     Active Substance: SITAGLIPTIN PHOSPHATE
     Dosage: UNK
     Route: 048
  2. METFORMIN [Suspect]
     Active Substance: METFORMIN HYDROCHLORIDE
  3. INSULIN [Suspect]
     Active Substance: INSULIN NOS
     Dosage: UNK

REACTIONS (10)
  - Foot amputation [Unknown]
  - Spinal column stenosis [Unknown]
  - Degenerative bone disease [Unknown]
  - Joint dislocation [Unknown]
  - Post procedural infection [Unknown]
  - Muscle strain [Unknown]
  - Hip surgery [Unknown]
  - Arthropathy [Unknown]
  - Toe amputation [Unknown]
  - Spinal operation [Unknown]
